FAERS Safety Report 5029000-8 (Version None)
Quarter: 2006Q2

REPORT INFORMATION
  Report Type: 
  Country: None (occurrence: None)
  Receive Date: 20060619
  Receipt Date: 20060606
  Transmission Date: 20061013
  Serious: Yes (Hospitalization)
  Sender: FDA-Public Use
  Company Number: PHBS2006RO08572

PATIENT
  Age: 59 Year
  Sex: Female
  Weight: 90 kg

DRUGS (4)
  1. MIOFILIN [Concomitant]
  2. DIGOXIN [Concomitant]
  3. BROMHEXIN [Concomitant]
  4. GLEEVEC [Suspect]
     Indication: CHRONIC MYELOID LEUKAEMIA
     Dosage: 400 MG/D
     Route: 048
     Dates: start: 20060604, end: 20060605

REACTIONS (4)
  - BRONCHOSPASM [None]
  - DYSPHAGIA [None]
  - FACE OEDEMA [None]
  - NAUSEA [None]
